FAERS Safety Report 4919393-1 (Version None)
Quarter: 2006Q1

REPORT INFORMATION
  Report Type: 
  Country: None (occurrence: None)
  Receive Date: 20060222
  Receipt Date: 20060213
  Transmission Date: 20060701
  Serious: Yes (Hospitalization, Disabling)
  Sender: FDA-Public Use
  Company Number: US-MERCK-0602USA04432

PATIENT
  Age: 60 Year
  Sex: Male
  Weight: 150 kg

DRUGS (2)
  1. VIOXX [Suspect]
     Indication: ARTHRITIS
     Route: 048
     Dates: start: 19990820, end: 20031201
  2. ASPIRIN [Concomitant]
     Route: 065

REACTIONS (5)
  - CARDIAC FAILURE CONGESTIVE [None]
  - DEPRESSION [None]
  - GASTRIC DISORDER [None]
  - MYOCARDIAL INFARCTION [None]
  - ULCER [None]
